FAERS Safety Report 20048347 (Version 1)
Quarter: 2021Q4

REPORT INFORMATION
  Report Type: Spontaneous
  Country: US (occurrence: None)
  Receive Date: 20211109
  Receipt Date: 20211109
  Transmission Date: 20220303
  Serious: Yes (Life-Threatening)
  Sender: FDA-Public Use
  Company Number: None

PATIENT
  Age: 0 Day
  Sex: Male
  Weight: 126.45 kg

DRUGS (1)
  1. CASIRIVIMAB\IMDEVIMAB [Suspect]
     Active Substance: CASIRIVIMAB\IMDEVIMAB
     Indication: COVID-19
     Dosage: FREQUENCY : ONCE;?
     Route: 058

REACTIONS (8)
  - Dizziness [None]
  - Hyperhidrosis [None]
  - Pallor [None]
  - Cold sweat [None]
  - Respiration abnormal [None]
  - Heart rate decreased [None]
  - Loss of consciousness [None]
  - Therapy interrupted [None]

NARRATIVE: CASE EVENT DATE: 19740526
